FAERS Safety Report 18315787 (Version 1)
Quarter: 2020Q3

REPORT INFORMATION
  Report Type: Other
  Country: CA (occurrence: CA)
  Receive Date: 20200926
  Receipt Date: 20200926
  Transmission Date: 20201103
  Serious: Yes (Other)
  Sender: FDA-Public Use
  Company Number: CA-CELLTRION INC.-2020CA026031

PATIENT

DRUGS (8)
  1. RITUXIMAB (UNKNOWN) [Suspect]
     Active Substance: RITUXIMAB
     Indication: RHEUMATOID ARTHRITIS
     Dosage: 1000 MICROGRAM
     Route: 042
  2. FOLIC ACID. [Concomitant]
     Active Substance: FOLIC ACID
  3. TYLENOL [Concomitant]
     Active Substance: ACETAMINOPHEN
  4. METHYLPREDNISOLONE. [Concomitant]
     Active Substance: METHYLPREDNISOLONE
     Indication: PREMEDICATION
     Dosage: 1000 MICROGRAM
     Route: 042
  5. ACETAMINOPHEN. [Concomitant]
     Active Substance: ACETAMINOPHEN
     Indication: PREMEDICATION
     Dosage: 650 MICROGRAM
     Route: 048
  6. METHOTREXATE. [Concomitant]
     Active Substance: METHOTREXATE
  7. CELEBREX [Suspect]
     Active Substance: CELECOXIB
     Indication: TENDONITIS
     Route: 065
  8. DIPHENHYDRAMINE. [Concomitant]
     Active Substance: DIPHENHYDRAMINE
     Indication: PREMEDICATION
     Dosage: 50 MICROGRAM
     Route: 048

REACTIONS (4)
  - Abdominal discomfort [Unknown]
  - Mastoiditis [Unknown]
  - Tendonitis [Unknown]
  - Underdose [Unknown]
